FAERS Safety Report 17032856 (Version 5)
Quarter: 2020Q1

REPORT INFORMATION
  Report Type: Spontaneous
  Country: US (occurrence: US)
  Receive Date: 20191114
  Receipt Date: 20200210
  Transmission Date: 20200409
  Serious: Yes (Hospitalization)
  Sender: FDA-Public Use
  Company Number: US-PFIZER INC-2019488873

PATIENT
  Age: 83 Year
  Sex: Male
  Weight: 114.74 kg

DRUGS (21)
  1. LIORESAL [Concomitant]
     Active Substance: BACLOFEN
     Indication: BACK PAIN
     Dosage: 10 MG, 1X/DAY (NIGHTLY)
     Route: 048
     Dates: start: 20190116
  2. VITAMIN D3 [Concomitant]
     Active Substance: CHOLECALCIFEROL
     Indication: VITAMIN SUPPLEMENTATION
     Dosage: 4000 IU, DAILY
     Route: 048
     Dates: start: 20190430
  3. NITROSTAT [Concomitant]
     Active Substance: NITROGLYCERIN
     Indication: ANGINA PECTORIS
     Dosage: 0.3 MG, AS NEEDE EVERY 5 MINUTES
     Route: 060
  4. ALDACTONE [Concomitant]
     Active Substance: SPIRONOLACTONE
     Indication: CARDIAC FAILURE
     Dosage: 12.5 MG, DAILY
     Route: 048
     Dates: start: 20190429
  5. VIBRAMYCIN [Concomitant]
     Active Substance: DOXYCYCLINE
     Indication: CARDIAC AMYLOIDOSIS
     Dosage: 100 MG, 2X/DAY
     Route: 048
     Dates: start: 20190709
  6. CELEXA [Concomitant]
     Active Substance: CITALOPRAM HYDROBROMIDE
     Indication: DEPRESSION
     Dosage: 10 MG, DAILY
     Route: 048
  7. NEURONTIN [Concomitant]
     Active Substance: GABAPENTIN
     Indication: NEUROPATHY PERIPHERAL
     Dosage: 1200 MG, 1X/DAY (NIGHTLY)
     Route: 048
     Dates: start: 20190429
  8. HUMULIN N [Concomitant]
     Active Substance: INSULIN HUMAN
     Indication: DIABETES MELLITUS
     Dosage: 50 IU/ML IN AM 25 IU/ML IN PM
  9. OXYGEN. [Concomitant]
     Active Substance: OXYGEN
     Dosage: AT NIGHT WITH C-PAP
  10. VYNDAQEL [Suspect]
     Active Substance: TAFAMIDIS MEGLUMINE
     Indication: CARDIAC AMYLOIDOSIS
     Dosage: 40 MG, 2X/DAY
     Route: 048
     Dates: start: 2019
  11. TUDCABIL [Concomitant]
     Indication: CARDIAC AMYLOIDOSIS
     Dosage: 250 MG, 3X/DAY
     Route: 048
     Dates: start: 20190708
  12. PRILOSEC [Concomitant]
     Active Substance: OMEPRAZOLE MAGNESIUM
     Indication: GASTROOESOPHAGEAL REFLUX DISEASE
     Dosage: 20 MG, 2X/DAY BEFORE MEALS
     Route: 048
  13. VYNDAQEL [Suspect]
     Active Substance: TAFAMIDIS MEGLUMINE
     Indication: CARDIAC DISORDER
     Dosage: 80 MG, DAILY
     Route: 048
     Dates: start: 20191009
  14. VYNDAQEL [Suspect]
     Active Substance: TAFAMIDIS MEGLUMINE
     Indication: AMYLOIDOSIS
     Dosage: 80 MG, DAILY
     Route: 048
     Dates: start: 20191116
  15. LIDODERM [Concomitant]
     Active Substance: LIDOCAINE
     Indication: PAIN
     Dosage: 1 DF, DAILY (APPLY FOR 12 HOURS, THEN REMOVE FOR 12 HOURS)
     Route: 062
     Dates: start: 20190429
  16. DEMADEX [Concomitant]
     Active Substance: TORSEMIDE
     Indication: CARDIAC FAILURE
     Dosage: 100 MG, 2X/DAY
     Route: 048
     Dates: start: 20191004
  17. VYNDAQEL [Suspect]
     Active Substance: TAFAMIDIS MEGLUMINE
     Indication: AMYLOIDOSIS
  18. ZEBETA [Concomitant]
     Active Substance: BISOPROLOL FUMARATE
     Indication: CARDIAC FAILURE
     Dosage: 5 MG, DAILY
     Route: 048
     Dates: start: 20190430
  19. COZAAR [Concomitant]
     Active Substance: LOSARTAN POTASSIUM
     Indication: CARDIAC FAILURE
     Dosage: 12.5 MG, DAILY
     Route: 048
     Dates: start: 20190429
  20. NITROSTAT [Concomitant]
     Active Substance: NITROGLYCERIN
     Indication: CHEST PAIN
  21. ELIQUIS [Concomitant]
     Active Substance: APIXABAN
     Indication: ATRIAL FIBRILLATION
     Dosage: 2.5 MG, 2X/DAY
     Route: 048
     Dates: start: 20190429

REACTIONS (2)
  - Fluid retention [Recovered/Resolved]
  - Off label use [Unknown]

NARRATIVE: CASE EVENT DATE: 20191016
